FAERS Safety Report 7016864-1 (Version None)
Quarter: 2010Q3

REPORT INFORMATION
  Report Type: 
  Country: None (occurrence: None)
  Receive Date: 20100927
  Receipt Date: 20100917
  Transmission Date: 20110219
  Serious: Yes (Other)
  Sender: FDA-Public Use
  Company Number: US-AMGEN-QUU429132

PATIENT
  Sex: Female
  Weight: 71.5 kg

DRUGS (5)
  1. EPOGEN [Suspect]
     Indication: RENAL FAILURE CHRONIC
     Route: 058
     Dates: start: 20080801, end: 20100801
  2. ISONIAZID [Concomitant]
     Dates: start: 20080801, end: 20090101
  3. MULTI-VITAMINS [Concomitant]
  4. FOLIC ACID [Concomitant]
  5. RENAGEL [Concomitant]

REACTIONS (5)
  - ANAEMIA [None]
  - APLASIA PURE RED CELL [None]
  - ERYTHROID SERIES ABNORMAL [None]
  - LATENT TUBERCULOSIS [None]
  - NEUTRALISING ANTIBODIES POSITIVE [None]
